FAERS Safety Report 5456316-3 (Version None)
Quarter: 2007Q3

REPORT INFORMATION
  Report Type: 
  Country: None (occurrence: None)
  Receive Date: 20070918
  Receipt Date: 20070907
  Transmission Date: 20080115
  Serious: Yes (Other)
  Sender: FDA-Public Use
  Company Number: US-MERCK-0706USA05128

PATIENT
  Age: 20 Year
  Sex: Male

DRUGS (3)
  1. PROPECIA [Suspect]
     Indication: ALOPECIA
     Route: 048
     Dates: start: 20030310, end: 20070223
  2. TETRACYCLINE [Suspect]
     Route: 065
  3. DOXYCYCLINE [Suspect]
     Route: 065

REACTIONS (21)
  - ANXIETY DISORDER [None]
  - BENIGN INTRACRANIAL HYPERTENSION [None]
  - BLINDNESS [None]
  - BLOOD CORTISOL INCREASED [None]
  - BLOOD OESTROGEN INCREASED [None]
  - COLOUR BLINDNESS [None]
  - CSF PRESSURE INCREASED [None]
  - DEPRESSION [None]
  - EMPTY SELLA SYNDROME [None]
  - FATIGUE [None]
  - HEMIANOPIA [None]
  - HYPERHIDROSIS [None]
  - JOINT SPRAIN [None]
  - LOSS OF VISUAL CONTRAST SENSITIVITY [None]
  - MEMORY IMPAIRMENT [None]
  - READING DISORDER [None]
  - SPEECH DISORDER [None]
  - TINEA PEDIS [None]
  - TINNITUS [None]
  - TREMOR [None]
  - VISUAL FIELD DEFECT [None]
